FAERS Safety Report 14873567 (Version 2)
Quarter: 2019Q1

REPORT INFORMATION
  Report Type: Spontaneous
  Country: GB (occurrence: GB)
  Receive Date: 20180510
  Receipt Date: 20190315
  Transmission Date: 20190417
  Serious: Yes (Hospitalization, Other)
  Sender: FDA-Public Use
  Company Number: GB-SUN PHARMACEUTICAL INDUSTRIES LTD-2018RR-172468

PATIENT
  Age: 50 Year
  Sex: Female

DRUGS (11)
  1. PERTUZUMAB. [Suspect]
     Active Substance: PERTUZUMAB
     Dosage: MAINTENANCE DOSE
     Route: 042
     Dates: start: 20150812
  2. DOCETAXEL. [Suspect]
     Active Substance: DOCETAXEL
     Indication: HER-2 POSITIVE BREAST CANCER
     Dosage: ON 04/NOV/2015, SHE COMPLETED PLANNED CYCLES OF DOCETAXEL.
     Route: 042
     Dates: start: 20150722, end: 20151104
  3. DEXAMETHASONE. [Concomitant]
     Active Substance: DEXAMETHASONE
     Indication: PROPHYLAXIS
     Dosage: 3 DAYS STARTING A DAY BEFORE CHEMOTHERAPY
     Route: 048
     Dates: start: 20150806
  4. TRASTUZUMAB. [Suspect]
     Active Substance: TRASTUZUMAB
     Indication: HER-2 POSITIVE BREAST CANCER
     Dosage: MAINTENANCE DOSE
     Route: 042
     Dates: start: 20150812
  5. BENDROFLUMETHIAZIDE [Concomitant]
     Active Substance: BENDROFLUMETHIAZIDE
     Indication: PRODUCT USED FOR UNKNOWN INDICATION
     Dosage: 2.5 MILLIGRAM
     Route: 048
  6. PERTUZUMAB. [Suspect]
     Active Substance: PERTUZUMAB
     Indication: HER-2 POSITIVE BREAST CANCER
     Dosage: LOADING DOSE
     Route: 042
     Dates: start: 20150722, end: 20150722
  7. DEXAMETHASONE. [Concomitant]
     Active Substance: DEXAMETHASONE
     Dosage: 2 MILLIGRAM
     Route: 048
     Dates: start: 20150901, end: 20150903
  8. NAPROXEN. [Concomitant]
     Active Substance: NAPROXEN
     Indication: PRODUCT USED FOR UNKNOWN INDICATION
     Dosage: ()AS NECESSARY
     Route: 048
  9. LOPERAMIDE [Concomitant]
     Active Substance: LOPERAMIDE
     Indication: PROPHYLAXIS
     Dosage: 1 OR 2 CAPSULES, MAXIMUM 8 TIMES A DAY
     Route: 048
     Dates: start: 20150804
  10. LETROZOLE. [Suspect]
     Active Substance: LETROZOLE
     Indication: HER-2 POSITIVE BREAST CANCER
     Dosage: 2.5 MILLIGRAM, DAILY
     Route: 048
     Dates: start: 20151124
  11. TRASTUZUMAB. [Suspect]
     Active Substance: TRASTUZUMAB
     Dosage: LOADING DOSE
     Route: 042
     Dates: start: 20150722, end: 20150722

REACTIONS (21)
  - Bone marrow failure [Recovered/Resolved]
  - Chest discomfort [Not Recovered/Not Resolved]
  - Hypokalaemia [Recovered/Resolved]
  - Neuropathy peripheral [Not Recovered/Not Resolved]
  - Decreased appetite [Recovered/Resolved]
  - Dysphagia [Not Recovered/Not Resolved]
  - Myalgia [Recovered/Resolved]
  - Ejection fraction decreased [Not Recovered/Not Resolved]
  - Fatigue [Recovered/Resolved]
  - Oedema peripheral [Recovered/Resolved]
  - Neutropenic sepsis [Recovered/Resolved]
  - Nail dystrophy [Recovered/Resolved]
  - Erythema [Recovered/Resolved]
  - Urinary tract infection [Unknown]
  - Dyspepsia [Recovered/Resolved]
  - Onychomadesis [Recovered/Resolved]
  - Cellulitis [Recovered/Resolved]
  - Bronchitis [Recovered/Resolved]
  - Dysgeusia [Recovered/Resolved]
  - Laryngitis [Unknown]
  - Skin exfoliation [Not Recovered/Not Resolved]

NARRATIVE: CASE EVENT DATE: 20150813
